FAERS Safety Report 8959909 (Version 2)
Quarter: 2012Q4

REPORT INFORMATION
  Report Type: 
  Country: US (occurrence: US)
  Receive Date: 20121212
  Receipt Date: 20121229
  Transmission Date: 20130627
  Serious: Yes (Other)
  Sender: FDA-Public Use
  Company Number: US-009507513-1212USA004341

PATIENT
  Age: 41 Year
  Sex: Female

DRUGS (3)
  1. VICTRELIS [Suspect]
     Indication: HEPATITIS C
     Dosage: 800 mg, tid
     Route: 048
     Dates: start: 20121109, end: 20121111
  2. RIBAVIRIN [Suspect]
     Dosage: 400 mg in morning and 600 mg in evening, bid
     Route: 048
  3. PEGASYS [Suspect]
     Dosage: 180 Microgram, qw
     Route: 058

REACTIONS (2)
  - Nausea [Unknown]
  - Vomiting [Unknown]
